FAERS Safety Report 10364253 (Version 1)
Quarter: 2014Q3

REPORT INFORMATION
  Report Type: Report from Study
  Country: US (occurrence: US)
  Receive Date: 20140806
  Receipt Date: 20140806
  Transmission Date: 20150326
  Serious: Yes (Hospitalization)
  Sender: FDA-Public Use
  Company Number: US-BIOGENIDEC-2014BI077779

PATIENT
  Age: 45 Year
  Sex: Female

DRUGS (1)
  1. TYSABRI [Suspect]
     Active Substance: NATALIZUMAB
     Indication: MULTIPLE SCLEROSIS
     Route: 042
     Dates: start: 20090107

REACTIONS (11)
  - Chest discomfort [Recovered/Resolved]
  - Toothache [Recovered/Resolved]
  - Secretion discharge [Recovered/Resolved]
  - Frustration [Recovered/Resolved]
  - Influenza [Recovered/Resolved]
  - Dyspnoea [Recovered/Resolved]
  - Prescribed underdose [Recovered/Resolved]
  - Malaise [Recovered/Resolved]
  - Nasopharyngitis [Recovered/Resolved]
  - General symptom [Unknown]
  - Drug dose omission [Recovered/Resolved]

NARRATIVE: CASE EVENT DATE: 2013
